FAERS Safety Report 9943052 (Version 1)
Quarter: 2014Q1

REPORT INFORMATION
  Report Type: Report from Study
  Country: US (occurrence: US)
  Receive Date: 20140303
  Receipt Date: 20140303
  Transmission Date: 20141002
  Serious: Yes (Other)
  Sender: FDA-Public Use
  Company Number: US-ABBVIE-13P-163-1048584-00

PATIENT
  Age: 68 Year
  Sex: Female

DRUGS (3)
  1. HUMIRA [Suspect]
     Indication: ANKYLOSING SPONDYLITIS
     Route: 058
     Dates: end: 201205
  2. HUMIRA [Suspect]
     Route: 058
     Dates: start: 201210, end: 201301
  3. HUMIRA [Suspect]
     Route: 058
     Dates: start: 201301, end: 201302

REACTIONS (4)
  - Fall [Recovered/Resolved]
  - Wrist fracture [Recovered/Resolved]
  - Drug ineffective [Unknown]
  - Ankylosing spondylitis [Unknown]
